FAERS Safety Report 8943504 (Version 2)
Quarter: 2012Q4

REPORT INFORMATION
  Report Type: 
  Country: US (occurrence: US)
  Receive Date: 20121204
  Receipt Date: 20121217
  Transmission Date: 20130627
  Serious: Yes (Other)
  Sender: FDA-Public Use
  Company Number: US-PFIZER INC-2012302417

PATIENT
  Sex: Female

DRUGS (2)
  1. CHANTIX [Suspect]
     Dosage: UNK
     Dates: start: 201211
  2. SIMVASTATIN [Interacting]
     Dosage: UNK

REACTIONS (7)
  - Drug interaction [Unknown]
  - Kidney infection [Unknown]
  - Muscle spasms [Unknown]
  - Pain [Unknown]
  - Nausea [Unknown]
  - Flatulence [Unknown]
  - Flank pain [Unknown]
